FAERS Safety Report 5758509-4 (Version None)
Quarter: 2008Q2

REPORT INFORMATION
  Report Type: 
  Country: None (occurrence: None)
  Receive Date: 20080604
  Receipt Date: 20080529
  Transmission Date: 20081010
  Serious: Yes (Death)
  Sender: FDA-Public Use
  Company Number: A0730251A

PATIENT
  Sex: Female

DRUGS (2)
  1. TYKERB [Suspect]
     Indication: DRUG USE FOR UNKNOWN INDICATION
     Dosage: 250MG UNKNOWN
     Route: 048
  2. UNKNOWN [Concomitant]

REACTIONS (1)
  - DISEASE PROGRESSION [None]
